FAERS Safety Report 7739675-8 (Version None)
Quarter: 2011Q3

REPORT INFORMATION
  Report Type: 
  Country: None (occurrence: None)
  Receive Date: 20110909
  Receipt Date: 20110907
  Transmission Date: 20111222
  Serious: Yes (Death, Other)
  Sender: FDA-Public Use
  Company Number: JP-PFIZER INC-2011201191

PATIENT
  Age: 7 Month
  Sex: Female

DRUGS (7)
  1. CYTARABINE [Suspect]
     Dosage: 6 MG, UNK
  2. METHOTREXATE SODIUM [Suspect]
     Indication: ACUTE MYELOID LEUKAEMIA
     Dosage: 3 MG, UNK
     Route: 037
  3. ETOPOSIDE [Suspect]
     Indication: ACUTE MYELOID LEUKAEMIA
     Dosage: 150 MG/M2, UNK
  4. NOVANTRONE [Suspect]
     Indication: ACUTE MYELOID LEUKAEMIA
     Dosage: 5 MG/M2, UNK
  5. HYDROCORTISONE SODIUM SUCCINATE [Suspect]
     Indication: ACUTE MYELOID LEUKAEMIA
     Dosage: 10 MG, UNK
  6. CYTARABINE [Suspect]
     Indication: ACUTE MYELOID LEUKAEMIA
     Dosage: 2000 MG/M2, UNK
  7. NEUPOGEN [Suspect]
     Indication: NEUTROPENIA

REACTIONS (7)
  - JAUNDICE [None]
  - HISTIOCYTOSIS HAEMATOPHAGIC [None]
  - FEBRILE NEUTROPENIA [None]
  - DISSEMINATED INTRAVASCULAR COAGULATION [None]
  - ILEUS [None]
  - ACUTE RESPIRATORY DISTRESS SYNDROME [None]
  - SEPTIC SHOCK [None]
